FAERS Safety Report 24890053 (Version 1)
Quarter: 2025Q1

REPORT INFORMATION
  Report Type: Spontaneous
  Country: US (occurrence: None)
  Receive Date: 20250124
  Receipt Date: 20250124
  Transmission Date: 20250409
  Serious: Yes (Death)
  Sender: FDA-CTU
  Company Number: None

PATIENT
  Age: 33 Year
  Sex: Male
  Weight: 69.75 kg

DRUGS (2)
  1. LOPERAMIDE HYDROCHLORIDE [Suspect]
     Active Substance: LOPERAMIDE HYDROCHLORIDE
     Indication: Withdrawal syndrome
     Dosage: TWICE A DAY ORAL ?
     Route: 048
     Dates: start: 20190424, end: 20241114
  2. IMODIUM [Concomitant]
     Active Substance: LOPERAMIDE HYDROCHLORIDE

REACTIONS (11)
  - Panic attack [None]
  - Incorrect dose administered [None]
  - Nausea [None]
  - Confusional state [None]
  - Loss of consciousness [None]
  - Fall [None]
  - Drug ineffective [None]
  - Toxicity to various agents [None]
  - Brain oedema [None]
  - Pulmonary oedema [None]
  - Nonspecific reaction [None]

NARRATIVE: CASE EVENT DATE: 20241113
